FAERS Safety Report 9871292 (Version 1)
Quarter: 2014Q1

REPORT INFORMATION
  Report Type: Report from Study
  Country: GB (occurrence: GB)
  Receive Date: 20140205
  Receipt Date: 20140205
  Transmission Date: 20141002
  Serious: Yes (Other)
  Sender: FDA-Public Use
  Company Number: GB-GLAXOSMITHKLINE-B0964853A

PATIENT
  Sex: 0

DRUGS (1)
  1. TYVERB [Suspect]
     Indication: BREAST CANCER METASTATIC
     Route: 065

REACTIONS (4)
  - Cardiotoxicity [Unknown]
  - Diarrhoea [Unknown]
  - Skin disorder [Unknown]
  - Fatigue [Unknown]
